FAERS Safety Report 7780482-8 (Version None)
Quarter: 2011Q3

REPORT INFORMATION
  Report Type: 
  Country: None (occurrence: None)
  Receive Date: 20110927
  Receipt Date: 20110718
  Transmission Date: 20111222
  Serious: No
  Sender: FDA-Public Use
  Company Number: US-GLAXOSMITHKLINE-A0937087A

PATIENT
  Age: 52 Year
  Sex: Female

DRUGS (15)
  1. MAXALT [Concomitant]
  2. REQUIP [Concomitant]
  3. ALLERGY MEDICATION [Concomitant]
  4. ADVAIR DISKUS 100/50 [Concomitant]
  5. SINGULAIR [Concomitant]
  6. FLONASE [Concomitant]
  7. PROAIR HFA [Concomitant]
  8. SEROQUEL [Concomitant]
  9. ACIPHEX [Concomitant]
  10. SOMA [Concomitant]
  11. LAMICTAL [Suspect]
     Indication: BIPOLAR DISORDER
     Dosage: 200MG PER DAY
     Route: 048
     Dates: start: 20100901
  12. CALAMINE LOTION [Concomitant]
  13. CENTELLA ASIATICA [Concomitant]
  14. MUSCLE RELAXER [Concomitant]
  15. FIORICET [Concomitant]

REACTIONS (5)
  - HEADACHE [None]
  - CONTUSION [None]
  - RASH MACULAR [None]
  - THROAT IRRITATION [None]
  - DEHYDRATION [None]
